FAERS Safety Report 4644527-6 (Version None)
Quarter: 2005Q2

REPORT INFORMATION
  Report Type: 
  Country: None (occurrence: None)
  Receive Date: 20050426
  Receipt Date: 20050414
  Transmission Date: 20051028
  Serious: Yes (Other)
  Sender: FDA-Public Use
  Company Number: US-JNJFOC-20050205321

PATIENT
  Age: 25 Year
  Sex: Female
  Weight: 53.3 kg

DRUGS (7)
  1. REMICADE [Suspect]
     Route: 042
  2. REMICADE [Suspect]
     Route: 042
  3. REMICADE [Suspect]
     Route: 042
  4. REMICADE [Suspect]
     Route: 042
  5. REMICADE [Suspect]
     Dosage: RECENT INDUCTION DOSE WEEKS 0, 2, 6
     Route: 042
  6. REMICADE [Suspect]
     Route: 042
  7. REMICADE [Suspect]
     Indication: CROHN'S DISEASE
     Route: 042

REACTIONS (8)
  - CHEST DISCOMFORT [None]
  - COUGH [None]
  - DYSPNOEA [None]
  - HEADACHE [None]
  - HYPOXIA [None]
  - INFUSION RELATED REACTION [None]
  - NAUSEA [None]
  - OXYGEN SATURATION DECREASED [None]
